FAERS Safety Report 5504202-2 (Version None)
Quarter: 2007Q4

REPORT INFORMATION
  Report Type: 
  Country: None (occurrence: None)
  Receive Date: 20071101
  Receipt Date: 20071022
  Transmission Date: 20080405
  Serious: Yes (Hospitalization)
  Sender: FDA-Public Use
  Company Number: B0492505A

PATIENT
  Age: 62 Year
  Sex: Male

DRUGS (6)
  1. DEROXAT [Suspect]
     Indication: DEPRESSION
     Dosage: 20MG PER DAY
     Route: 048
     Dates: start: 20070807, end: 20070823
  2. INDAPAMIDE [Suspect]
     Dosage: 1.5MG PER DAY
     Route: 048
     Dates: start: 20070807, end: 20070823
  3. KARDEGIC [Concomitant]
     Route: 065
  4. LANTUS [Concomitant]
     Route: 065
  5. APROVEL [Concomitant]
     Route: 065
  6. NOVONORM [Concomitant]
     Route: 065

REACTIONS (5)
  - ALTERED STATE OF CONSCIOUSNESS [None]
  - CHEST PAIN [None]
  - DEHYDRATION [None]
  - DRUG INTERACTION [None]
  - HYPONATRAEMIA [None]
